FAERS Safety Report 10262078 (Version 1)
Quarter: 2014Q2

REPORT INFORMATION
  Report Type: Spontaneous
  Country: DE (occurrence: DE)
  Receive Date: 20140626
  Receipt Date: 20140626
  Transmission Date: 20141212
  Serious: Yes (Hospitalization)
  Sender: FDA-Public Use
  Company Number: DE-009507513-1406DEU011867

PATIENT
  Age: 37 Year
  Sex: Female

DRUGS (5)
  1. ORGALUTRAN [Suspect]
  2. GONAL-F [Suspect]
  3. DECAPEPTYL (TRIPTORELIN ACETATE) [Suspect]
  4. ESTRIFAM [Suspect]
  5. PROGESTAN [Suspect]

REACTIONS (2)
  - Ascites [Recovered/Resolved]
  - Ovarian hyperstimulation syndrome [Recovered/Resolved]
